FAERS Safety Report 20723410 (Version 1)
Quarter: 2022Q2

REPORT INFORMATION
  Report Type: Spontaneous
  Country: DE (occurrence: DE)
  Receive Date: 20220419
  Receipt Date: 20220419
  Transmission Date: 20220720
  Serious: Yes (Other)
  Sender: FDA-Public Use
  Company Number: DE-SUN PHARMACEUTICAL INDUSTRIES LTD-2022RR-333359

PATIENT
  Sex: Male

DRUGS (1)
  1. SUMATRIPTAN [Suspect]
     Active Substance: SUMATRIPTAN
     Indication: Migraine
     Dosage: UNK
     Route: 058

REACTIONS (14)
  - Overdose [Unknown]
  - Amnesia [Unknown]
  - Off label use [Unknown]
  - Concussion [Unknown]
  - Off label use [Unknown]
  - Contusion [Unknown]
  - Contusion [Unknown]
  - Movement disorder [Unknown]
  - Headache [Unknown]
  - Tremor [Unknown]
  - Feeling cold [Unknown]
  - Peripheral vascular disorder [Unknown]
  - Feeling abnormal [Unknown]
  - Drug ineffective [Unknown]

NARRATIVE: CASE EVENT DATE: 20220328
